FAERS Safety Report 5056517-2 (Version None)
Quarter: 2006Q3

REPORT INFORMATION
  Report Type: 
  Country: None (occurrence: None)
  Receive Date: 20060714
  Receipt Date: 20060629
  Transmission Date: 20061208
  Serious: Yes (Hospitalization)
  Sender: FDA-Public Use
  Company Number: US200606006035

PATIENT
  Age: 49 Year
  Sex: Female
  Weight: 68 kg

DRUGS (1)
  1. HUMULIN 70/30 [Suspect]
     Indication: BLOOD GLUCOSE ABNORMAL
     Dosage: SEE IMAGE
     Dates: start: 20010101

REACTIONS (6)
  - ANAEMIA [None]
  - BLOOD OESTROGEN DECREASED [None]
  - MALAISE [None]
  - POST PROCEDURAL COMPLICATION [None]
  - UTERINE HAEMORRHAGE [None]
  - UTERINE LEIOMYOMA [None]
